FAERS Safety Report 5044719-0 (Version None)
Quarter: 2006Q3

REPORT INFORMATION
  Report Type: 
  Country: None (occurrence: None)
  Receive Date: 20060707
  Receipt Date: 20060628
  Transmission Date: 20061208
  Serious: Yes (Hospitalization)
  Sender: FDA-Public Use
  Company Number: PHFR2006GB02103

PATIENT
  Age: 79 Year
  Sex: Female
  Weight: 90 kg

DRUGS (1)
  1. VOLTAREN [Suspect]
     Dosage: UNK, UNK
     Route: 048
     Dates: end: 20060519

REACTIONS (4)
  - DECUBITUS ULCER [None]
  - DIALYSIS [None]
  - GASTRIC ULCER [None]
  - RENAL FAILURE ACUTE [None]
